FAERS Safety Report 7115802-0 (Version None)
Quarter: 2010Q4

REPORT INFORMATION
  Report Type: 
  Country: None (occurrence: None)
  Receive Date: 20101122
  Receipt Date: 20101111
  Transmission Date: 20110411
  Serious: Yes (Death)
  Sender: FDA-Public Use
  Company Number: US-BRACCO-005501

PATIENT
  Age: 65 Year
  Sex: Male
  Weight: 89.5 kg

DRUGS (2)
  1. MULTIHANCE [Suspect]
     Indication: NUCLEAR MAGNETIC RESONANCE IMAGING
     Route: 042
     Dates: start: 20101111, end: 20101111
  2. MULTIHANCE [Suspect]
     Indication: MASTOIDITIS
     Route: 042
     Dates: start: 20101111, end: 20101111

REACTIONS (3)
  - CARDIAC ARREST [None]
  - FEELING ABNORMAL [None]
  - GRAND MAL CONVULSION [None]
